FAERS Safety Report 11137071 (Version 1)
Quarter: 2015Q2

REPORT INFORMATION
  Report Type: Spontaneous
  Country: US (occurrence: US)
  Receive Date: 20150526
  Receipt Date: 20150526
  Transmission Date: 20150821
  Serious: Yes (Other)
  Sender: FDA-Public Use
  Company Number: US-GLAXOSMITHKLINE-US2015GSK071572

PATIENT
  Age: 70 Year
  Sex: Female

DRUGS (4)
  1. QUETIAPINE [Interacting]
     Active Substance: QUETIAPINE
     Indication: DEPRESSION
     Dosage: 400 MG, 1D, AT NIGHT
  2. LAMOTRIGINE. [Interacting]
     Active Substance: LAMOTRIGINE
     Indication: DEPRESSION
     Dosage: 75 MG, BID
  3. ESCITALOPRAM [Interacting]
     Active Substance: ESCITALOPRAM OXALATE
     Indication: DEPRESSION
     Dosage: 3 MG, 1D
  4. BUPROPION [Suspect]
     Active Substance: BUPROPION
     Indication: DEPRESSION

REACTIONS (4)
  - Hyponatraemia [Recovered/Resolved]
  - Inappropriate antidiuretic hormone secretion [Unknown]
  - Drug interaction [Unknown]
  - Confusional state [Unknown]
